FAERS Safety Report 7300667-4 (Version None)
Quarter: 2011Q1

REPORT INFORMATION
  Report Type: 
  Country: None (occurrence: None)
  Receive Date: 20110218
  Receipt Date: 20110215
  Transmission Date: 20110831
  Serious: Yes (Hospitalization)
  Sender: FDA-Public Use
  Company Number: DE-SHIRE-CQT2-2011-00003

PATIENT
  Sex: Female

DRUGS (18)
  1. ANAGRELIDE HCL [Suspect]
     Dosage: 0.75 MG DAILY ALTERNATING WITH 1 MG DAILY
     Route: 048
     Dates: start: 20070702, end: 20070923
  2. ANAGRELIDE HCL [Suspect]
     Dosage: 0.5 MG FIVE TIMES DAILY
     Route: 048
     Dates: start: 20071122, end: 20080116
  3. DECORTIN [Concomitant]
     Indication: PSORIATIC ARTHROPATHY
     Dosage: 5 MG, 1X/DAY:QD
     Route: 048
     Dates: start: 20060101
  4. MARCUMAR [Concomitant]
     Dosage: 50 MG, 1X/DAY:QD
     Route: 048
     Dates: start: 20060101, end: 20070101
  5. ANAGRELIDE HCL [Suspect]
     Indication: ESSENTIAL THROMBOCYTHAEMIA
     Dosage: 1.75 MG, 2X/DAY:BID
     Route: 048
     Dates: start: 20101028
  6. ANAGRELIDE HCL [Suspect]
     Dosage: 0.5 MG, 1X/DAY:QD
     Route: 048
     Dates: start: 20070322, end: 20070409
  7. ANAGRELIDE HCL [Suspect]
     Dosage: 0.5 MG, 4X/DAY:QID
     Route: 048
     Dates: start: 20070924, end: 20071121
  8. ANAGRELIDE HCL [Suspect]
     Dosage: 0.5 MG FIVE TIMES DAILY
     Route: 048
     Dates: start: 20080124, end: 20101027
  9. TELFAST [Concomitant]
     Indication: RHINITIS ALLERGIC
     Dosage: 120 MG, 1X/DAY:QD
     Route: 048
     Dates: start: 20070214
  10. METHOTREXATE [Concomitant]
     Indication: PSORIATIC ARTHROPATHY
     Dosage: 20 MG, 1X/WEEK
     Route: 042
     Dates: start: 20060101
  11. ANAGRELIDE HCL [Suspect]
     Dosage: 0.5 MG, 3X/DAY:TID
     Route: 048
     Dates: start: 20070410, end: 20070701
  12. TILIDIN [Concomitant]
     Indication: PSORIATIC ARTHROPATHY
     Dosage: 20 GTT, 3X/DAY:TID
     Route: 048
     Dates: start: 20070227
  13. MARCUMAR [Concomitant]
     Indication: PULMONARY EMBOLISM
     Dosage: 50 MG, 1X/DAY:QD
     Route: 048
     Dates: start: 20100301
  14. ANAGRELIDE HCL [Suspect]
     Dosage: 0.5 MG, 4X/DAY:QID
     Route: 048
     Dates: start: 20080117, end: 20080123
  15. HYDROXYUREA [Suspect]
     Indication: ESSENTIAL THROMBOCYTHAEMIA
     Dosage: 500 MG, 2X/DAY:BID
     Route: 048
     Dates: start: 20080117, end: 20080123
  16. OMEPRAZOL                          /00661203/ [Concomitant]
     Indication: PROPHYLAXIS AGAINST GASTROINTESTINAL ULCER
     Dosage: 90 MG, 1X/DAY:QD
     Route: 048
     Dates: start: 20060101
  17. ARCOXIA [Concomitant]
     Indication: PSORIATIC ARTHROPATHY
     Dosage: 90 MG, 1X/DAY:QD
     Route: 048
     Dates: start: 20060101
  18. AMITRIPTYLINE [Concomitant]
     Indication: DEPRESSION
     Dosage: 50 MG, 1X/DAY:QD
     Route: 048
     Dates: start: 20060101

REACTIONS (1)
  - GASTROENTERITIS [None]
